FAERS Safety Report 12299731 (Version 2)
Quarter: 2016Q2

REPORT INFORMATION
  Report Type: Report from Study
  Country: BR (occurrence: BR)
  Receive Date: 20160425
  Receipt Date: 20160519
  Transmission Date: 20160815
  Serious: Yes (Other)
  Sender: FDA-Public Use
  Company Number: PHHY2015BR089607

PATIENT
  Age: 36 Year
  Sex: Female
  Weight: 55 kg

DRUGS (3)
  1. CITALOPRAM [Concomitant]
     Active Substance: CITALOPRAM HYDROBROMIDE
     Indication: ANXIETY
     Dosage: 30 MG (1 TABLET AND HALF), QD
     Route: 048
  2. GILENYA [Suspect]
     Active Substance: FINGOLIMOD HYDROCHLORIDE
     Indication: MULTIPLE SCLEROSIS
     Dosage: 0.5 MG, QD
     Route: 048
     Dates: start: 201403, end: 20150730
  3. GILENYA [Suspect]
     Active Substance: FINGOLIMOD HYDROCHLORIDE
     Dosage: UNK
     Route: 065

REACTIONS (12)
  - Musculoskeletal pain [Recovered/Resolved]
  - Haemoglobin abnormal [Unknown]
  - Insomnia [Recovered/Resolved]
  - Multiple sclerosis relapse [Recovered/Resolved]
  - Nervousness [Recovered/Resolved]
  - Pain [Recovered/Resolved]
  - Hypoaesthesia [Unknown]
  - Vaginal haemorrhage [Unknown]
  - Fatigue [Recovered/Resolved]
  - Mood altered [Recovered/Resolved]
  - Dry mouth [Recovered/Resolved]
  - Feeling abnormal [Recovered/Resolved]

NARRATIVE: CASE EVENT DATE: 201604
